FAERS Safety Report 6666491-0 (Version None)
Quarter: 2010Q2

REPORT INFORMATION
  Report Type: 
  Country: None (occurrence: None)
  Receive Date: 20100402
  Receipt Date: 20100325
  Transmission Date: 20101027
  Serious: Yes (Hospitalization, Other)
  Sender: FDA-Public Use
  Company Number: US-AMGEN-QUU383847

PATIENT
  Sex: Female

DRUGS (25)
  1. ENBREL [Suspect]
     Indication: RHEUMATOID ARTHRITIS
     Route: 058
     Dates: start: 20090605, end: 20090612
  2. QVAR 40 [Concomitant]
  3. FOLIC ACID [Concomitant]
  4. MOBIC [Concomitant]
  5. SOMA [Concomitant]
  6. PREDNISONE TAB [Concomitant]
  7. ASACOL [Concomitant]
  8. LOMOTIL [Concomitant]
  9. HYDROCHLOROTHIAZIDE [Concomitant]
  10. AMLODIPINE [Concomitant]
  11. LIPITOR [Concomitant]
  12. FENTANYL [Concomitant]
  13. DILAUDID [Concomitant]
  14. HYDROMORPHONE HCL [Concomitant]
  15. PROTONIX [Concomitant]
  16. ADVAIR DISKUS 100/50 [Concomitant]
  17. PROVENTIL [Concomitant]
  18. LASIX [Concomitant]
  19. VITAMIN D [Concomitant]
  20. MULTI-VITAMINS [Concomitant]
  21. COENZYME Q10 [Concomitant]
  22. FISH OIL [Concomitant]
  23. OS-CAL [Concomitant]
  24. ALLEGRA [Concomitant]
  25. CLINDAMYCIN [Concomitant]

REACTIONS (15)
  - BRONCHITIS [None]
  - CHEST PAIN [None]
  - CLOSTRIDIAL INFECTION [None]
  - COMPUTERISED TOMOGRAM ABNORMAL [None]
  - DYSPNOEA [None]
  - ENDODONTIC PROCEDURE [None]
  - FALL [None]
  - FOOT FRACTURE [None]
  - HEPATIC FUNCTION ABNORMAL [None]
  - NEUROMA [None]
  - OSTEOPOROSIS [None]
  - OXYGEN SATURATION DECREASED [None]
  - PERIARTHRITIS [None]
  - SYNOVITIS [None]
  - TOOTH INFECTION [None]
